FAERS Safety Report 17486904 (Version 1)
Quarter: 2020Q1

REPORT INFORMATION
  Report Type: Report from Study
  Country: ES (occurrence: ES)
  Receive Date: 20200303
  Receipt Date: 20200303
  Transmission Date: 20200409
  Serious: Yes (Hospitalization)
  Sender: FDA-Public Use
  Company Number: ES-TEVA-2020-ES-1193908

PATIENT
  Age: 72 Year
  Sex: Male

DRUGS (6)
  1. LACTITOLMONOHIDRATO(2454MH) [Concomitant]
     Indication: HEPATIC CIRRHOSIS
     Dosage: 20 MG
     Route: 048
     Dates: start: 20171110, end: 20171119
  2. AMLODIPINO(2503A) [Concomitant]
     Indication: HYPERTENSION
     Dosage: 5 MG
     Route: 048
     Dates: start: 20170602, end: 20171119
  3. METFORMINA(1359A) [Interacting]
     Active Substance: METFORMIN HYDROCHLORIDE
     Indication: DIABETES MELLITUS
     Dosage: 1.7 GM
     Route: 048
     Dates: start: 20110620, end: 20171119
  4. GLIMEPIRIDA(7395A) [Suspect]
     Active Substance: GLIMEPIRIDE
     Indication: DIABETES MELLITUS
     Dosage: 4 MG
     Route: 048
     Dates: start: 20110620, end: 20171119
  5. ENALAPRIL+HIDROCLOROTIAZIDA [Interacting]
     Active Substance: ENALAPRIL\HYDROCHLOROTHIAZIDE
     Indication: HYPERTENSION
     Dosage: 1 DOSAGE FORMS
     Route: 048
     Dates: end: 20171119
  6. PANTOPRAZOL(7275A) [Concomitant]
     Indication: PROPHYLAXIS
     Dosage: 80 MG
     Route: 048
     Dates: start: 20171027

REACTIONS (2)
  - Drug interaction [Unknown]
  - Acute kidney injury [Recovering/Resolving]

NARRATIVE: CASE EVENT DATE: 201711
